FAERS Safety Report 24592575 (Version 1)
Quarter: 2024Q4

REPORT INFORMATION
  Report Type: Report from Study
  Country: US (occurrence: US)
  Receive Date: 20241108
  Receipt Date: 20241108
  Transmission Date: 20250114
  Serious: Yes (Other)
  Sender: JOHNSON AND JOHNSON
  Company Number: US-JNJFOC-20241079579

PATIENT

DRUGS (6)
  1. STELARA [Suspect]
     Active Substance: USTEKINUMAB
     Indication: Psoriasis
     Route: 058
  2. STELARA [Suspect]
     Active Substance: USTEKINUMAB
     Route: 058
  3. STELARA [Suspect]
     Active Substance: USTEKINUMAB
     Route: 058
  4. STELARA [Suspect]
     Active Substance: USTEKINUMAB
     Route: 058
  5. STELARA [Suspect]
     Active Substance: USTEKINUMAB
     Route: 058
  6. USTEKINUMAB-AUUB [Suspect]
     Active Substance: USTEKINUMAB-AUUB
     Indication: Psoriasis
     Route: 065

REACTIONS (17)
  - Anaphylactic reaction [Unknown]
  - Sepsis [Unknown]
  - Myocardial infarction [Unknown]
  - COVID-19 pneumonia [Unknown]
  - Ovarian cancer [Unknown]
  - Bipolar disorder [Unknown]
  - Femoral neck fracture [Unknown]
  - COVID-19 [Unknown]
  - Infected cyst [Unknown]
  - Postoperative wound infection [Unknown]
  - Uterine leiomyoma [Unknown]
  - Cholelithiasis [Unknown]
  - Renal neoplasm [Unknown]
  - Intervertebral disc disorder [Unknown]
  - Alanine aminotransferase increased [Unknown]
  - Hypertension [Unknown]
  - Off label use [Unknown]
